FAERS Safety Report 6194439-4 (Version None)
Quarter: 2009Q2

REPORT INFORMATION
  Report Type: 
  Country: None (occurrence: None)
  Receive Date: 20090515
  Receipt Date: 20090507
  Transmission Date: 20091009
  Serious: Yes (Life-Threatening)
  Sender: FDA-Public Use
  Company Number: GXKR2009GB05557

PATIENT
  Age: 72 Year
  Sex: Male
  Weight: 61 kg

DRUGS (13)
  1. WARFARIN SODIUM [Suspect]
     Dosage: ORAL
     Route: 048
     Dates: start: 20090101
  2. DEXAMETHASONE TAB [Suspect]
     Indication: MULTIPLE MYELOMA
     Dosage: 20 MG, ORAL
     Route: 048
     Dates: start: 20090101
  3. THALIDOMIDE [Suspect]
     Indication: MULTIPLE MYELOMA
     Dosage: 50 MG, QD, ORAL
     Route: 048
     Dates: start: 20090101
  4. ACYCLOVIR [Concomitant]
  5. ALLOPURINOL [Concomitant]
  6. AMLODIPINE [Concomitant]
  7. CO-TRIMOXAZOLE (CO-TRIMOXAZOLE) [Concomitant]
  8. CYCLOPHOSPHAMIDE [Concomitant]
  9. FERROUS SULPHATE (FERROUS SULFATE) [Concomitant]
  10. FLUCONAZOLE [Concomitant]
  11. FOLIC ACID [Concomitant]
  12. OMEPRAZOLE [Concomitant]
  13. ONDANSETRON HCL [Concomitant]

REACTIONS (4)
  - ANTICOAGULATION DRUG LEVEL BELOW THERAPEUTIC [None]
  - DRUG INTERACTION [None]
  - INTERNATIONAL NORMALISED RATIO DECREASED [None]
  - INTESTINAL ISCHAEMIA [None]
